FAERS Safety Report 5672739-1 (Version None)
Quarter: 2008Q1

REPORT INFORMATION
  Report Type: 
  Country: None (occurrence: None)
  Receive Date: 20080319
  Receipt Date: 20070416
  Transmission Date: 20080703
  Serious: No
  Sender: FDA-Public Use
  Company Number: US-KINGPHARMUSA00001-K200700486

PATIENT

DRUGS (6)
  1. ALTACE [Suspect]
     Indication: HYPERTENSION
     Dosage: 10 MG, QD
     Route: 048
  2. ZIAC  /01166101/ [Concomitant]
     Indication: HYPERTENSION
  3. CRESTOR [Concomitant]
     Indication: BLOOD CHOLESTEROL INCREASED
  4. TRICOR /00499301/ [Concomitant]
     Indication: BLOOD CHOLESTEROL INCREASED
  5. CLARITIN  /00917501/ [Concomitant]
     Indication: SEASONAL ALLERGY
     Dosage: UNK, PRN
  6. VIAGRA [Concomitant]
     Dosage: UNK, PRN

REACTIONS (2)
  - ERYTHEMA [None]
  - PHOTOSENSITIVITY REACTION [None]
